FAERS Safety Report 6706957-8 (Version None)
Quarter: 2010Q2

REPORT INFORMATION
  Report Type: 
  Country: None (occurrence: None)
  Receive Date: 20100428
  Receipt Date: 20100412
  Transmission Date: 20101027
  Serious: Yes (Hospitalization)
  Sender: FDA-Public Use
  Company Number: 002798

PATIENT
  Sex: Female
  Weight: 95.3 kg

DRUGS (11)
  1. CERTOLIZUMAB PEGOL [Suspect]
     Indication: RHEUMATOID ARTHRITIS
     Dosage: (200 MG 1X/2 WEEKS SUBCUTANEOUS)
     Route: 058
     Dates: start: 20081209, end: 20090804
  2. FLEXERIL [Concomitant]
  3. PLAQUENIL /00072603/ [Concomitant]
  4. PREDNISONE [Concomitant]
  5. PERCOCET [Concomitant]
  6. METHOTREXATE [Concomitant]
  7. FOLIC ACID [Concomitant]
  8. LISINOPRIL AND HYDROCHLOROTHIAZIDE [Concomitant]
  9. CITRACAL [Concomitant]
  10. FOSAMAX [Concomitant]
  11. MYLANTA AR ARID REDUCER [Concomitant]

REACTIONS (5)
  - BLOOD PRESSURE SYSTOLIC INCREASED [None]
  - CAROTID ARTERIOSCLEROSIS [None]
  - HYPERLIPIDAEMIA [None]
  - ISCHAEMIC CEREBRAL INFARCTION [None]
  - ULCER [None]
